FAERS Safety Report 25726176 (Version 1)
Quarter: 2025Q3

REPORT INFORMATION
  Report Type: Spontaneous
  Country: US (occurrence: None)
  Receive Date: 20250825
  Receipt Date: 20250825
  Transmission Date: 20251021
  Serious: Yes (Hospitalization)
  Sender: FDA-CTU
  Company Number: None

PATIENT
  Sex: Female

DRUGS (4)
  1. ALYQ [Suspect]
     Active Substance: TADALAFIL
     Indication: Pulmonary arterial hypertension
     Dosage: 40 MG DAILY ORAL
     Route: 048
     Dates: start: 20250612
  2. UPTRAVI [Suspect]
     Active Substance: SELEXIPAG
  3. AMBRISENTAN [Concomitant]
     Active Substance: AMBRISENTAN
  4. ALYQ [Concomitant]
     Active Substance: TADALAFIL

REACTIONS (2)
  - Psychotic disorder [None]
  - Dyspnoea [None]
